FAERS Safety Report 19093614 (Version 2)
Quarter: 2021Q2

REPORT INFORMATION
  Report Type: Spontaneous
  Country: DE (occurrence: DE)
  Receive Date: 20210405
  Receipt Date: 20210412
  Transmission Date: 20210717
  Serious: Yes (Other)
  Sender: FDA-Public Use
  Company Number: DE-PURDUE-USA-2021-0239806

PATIENT
  Age: 31 Year
  Sex: Male

DRUGS (10)
  1. LORAZEPAM. [Interacting]
     Active Substance: LORAZEPAM
     Indication: PRODUCT USED FOR UNKNOWN INDICATION
     Dosage: UNK
     Route: 065
  2. MORPHINE SULFATE (SIMILAR TO NDA 19?516) [Interacting]
     Active Substance: MORPHINE SULFATE
     Dosage: UNK
     Route: 065
  3. DIAZEPAM. [Interacting]
     Active Substance: DIAZEPAM
     Indication: PRODUCT USED FOR UNKNOWN INDICATION
     Dosage: UNK
     Route: 065
  4. CODEINE [Interacting]
     Active Substance: CODEINE
     Indication: PRODUCT USED FOR UNKNOWN INDICATION
     Dosage: UNK
     Route: 065
  5. NORDAZEPAM [Interacting]
     Active Substance: NORDAZEPAM
     Indication: PRODUCT USED FOR UNKNOWN INDICATION
     Dosage: UNK
     Route: 065
  6. LORAZEPAM. [Interacting]
     Active Substance: LORAZEPAM
     Dosage: UNK
     Route: 065
  7. NORDAZEPAM [Interacting]
     Active Substance: NORDAZEPAM
     Dosage: UNK
     Route: 065
  8. MORPHINE SULFATE (SIMILAR TO NDA 19?516) [Suspect]
     Active Substance: MORPHINE SULFATE
     Indication: PRODUCT USED FOR UNKNOWN INDICATION
     Dosage: UNK
     Route: 065
  9. DIAZEPAM. [Interacting]
     Active Substance: DIAZEPAM
     Dosage: UNK
     Route: 065
  10. CODEINE [Interacting]
     Active Substance: CODEINE
     Dosage: UNK
     Route: 065

REACTIONS (12)
  - Coordination abnormal [Unknown]
  - Aggression [Unknown]
  - Gait disturbance [Unknown]
  - Depressed level of consciousness [Unknown]
  - Restlessness [Unknown]
  - Somnolence [Unknown]
  - Drug dependence [Unknown]
  - Miosis [Unknown]
  - Drug abuse [Unknown]
  - Dysarthria [Unknown]
  - Drug interaction [Unknown]
  - Bradyphrenia [Unknown]
